FAERS Safety Report 7550643-1 (Version None)
Quarter: 2011Q2

REPORT INFORMATION
  Report Type: 
  Country: None (occurrence: None)
  Receive Date: 20110616
  Receipt Date: 20110607
  Transmission Date: 20111010
  Serious: Yes (Death)
  Sender: FDA-Public Use
  Company Number: US-CELGENEUS-163-21880-11052355

PATIENT
  Sex: Male

DRUGS (4)
  1. NEPHROCAPS [Concomitant]
     Route: 048
  2. REVLIMID [Suspect]
     Indication: MULTIPLE MYELOMA
     Dosage: 5 MILLIGRAM
     Route: 048
     Dates: start: 20110424, end: 20110424
  3. FISH OIL [Concomitant]
     Route: 048
  4. MULTI-VITAMINS [Concomitant]
     Route: 048

REACTIONS (1)
  - DEATH [None]
